FAERS Safety Report 21059079 (Version 2)
Quarter: 2022Q4

REPORT INFORMATION
  Report Type: Spontaneous
  Country: AU (occurrence: AU)
  Receive Date: 20220708
  Receipt Date: 20221025
  Transmission Date: 20230113
  Serious: Yes (Other)
  Sender: FDA-Public Use
  Company Number: AU-INSUD PHARMA-2206AU02611

PATIENT
  Age: 43 Year
  Sex: Female

DRUGS (1)
  1. DROSPIRENONE [Suspect]
     Active Substance: DROSPIRENONE
     Indication: Product used for unknown indication

REACTIONS (2)
  - Pancreatitis [Recovered/Resolved with Sequelae]
  - Amylase increased [Recovered/Resolved]

NARRATIVE: CASE EVENT DATE: 20220301
